FAERS Safety Report 9062351 (Version 3)
Quarter: 2013Q2

REPORT INFORMATION
  Report Type: Spontaneous
  Country: CR (occurrence: CR)
  Receive Date: 20130213
  Receipt Date: 20130418
  Transmission Date: 20140414
  Serious: Yes (Hospitalization, Other)
  Sender: FDA-Public Use
  Company Number: CR-GLAXOSMITHKLINE-A1011726A

PATIENT
  Age: 58 Year
  Sex: Female

DRUGS (1)
  1. ARIXTRA [Suspect]
     Indication: FACE LIFT
     Dosage: 25MG UNKNOWN
     Route: 058

REACTIONS (7)
  - Skin necrosis [Recovering/Resolving]
  - Necrosis [Unknown]
  - Haematoma [Recovering/Resolving]
  - Incision site haematoma [Recovering/Resolving]
  - Postoperative wound complication [Recovering/Resolving]
  - Lipoinjection [Not Recovered/Not Resolved]
  - Off label use [Unknown]
